FAERS Safety Report 20638495 (Version 1)
Quarter: 2022Q1

REPORT INFORMATION
  Report Type: Spontaneous
  Country: CN (occurrence: CN)
  Receive Date: 20220325
  Receipt Date: 20220325
  Transmission Date: 20220423
  Serious: Yes (Hospitalization)
  Sender: FDA-Public Use
  Company Number: CN-ORGANON-O2203CHN002283

PATIENT
  Age: 75 Year
  Sex: Female
  Weight: 69 kg

DRUGS (5)
  1. FOSAMAX [Suspect]
     Active Substance: ALENDRONATE SODIUM
     Indication: Osteoporosis
     Dosage: 70 MILLIGRAM, QW
     Route: 048
     Dates: start: 20220221, end: 20220306
  2. METFORMIN HYDROCHLORIDE [Concomitant]
     Active Substance: METFORMIN HYDROCHLORIDE
     Indication: Blood glucose abnormal
     Dosage: 0.5 GRAM, BID (0.5 G IN THE MORNING AND AT MEALS)
     Route: 048
     Dates: start: 20220305, end: 20220314
  3. NIFEDIPINE [Concomitant]
     Active Substance: NIFEDIPINE
     Indication: Hypertension
     Dosage: 30 MILLIGRAM, QD (30MG, QD)
     Route: 048
     Dates: start: 20220305, end: 20220314
  4. ASPIRIN [Concomitant]
     Active Substance: ASPIRIN
     Indication: Thrombosis prophylaxis
     Dosage: 100 MILLIGRAM, QD; ENTERIC-COATED TABLETS
     Route: 048
     Dates: start: 20220305, end: 20220314
  5. ATORVASTATIN CALCIUM [Concomitant]
     Active Substance: ATORVASTATIN CALCIUM
     Indication: Lipids abnormal
     Dosage: 20 MILLIGRAM, QD (REPORTED AS ^20 MG AT BEDTIME EVERY NIGHT^)
     Route: 048
     Dates: start: 20220305, end: 20220314

REACTIONS (5)
  - Hepatic function abnormal [Recovered/Resolved]
  - Back pain [Recovered/Resolved]
  - Gastritis [Recovered/Resolved]
  - Dyspnoea [Unknown]
  - Pyrexia [Unknown]

NARRATIVE: CASE EVENT DATE: 20220221
